FAERS Safety Report 10927527 (Version 1)
Quarter: 2015Q1

REPORT INFORMATION
  Report Type: Spontaneous
  Country: CN (occurrence: CN)
  Receive Date: 20150318
  Receipt Date: 20150318
  Transmission Date: 20150721
  Serious: Yes (Other)
  Sender: FDA-Public Use
  Company Number: CN-BAXTER-2015BAX013888

PATIENT
  Age: 32 Year
  Sex: Male
  Weight: 65 kg

DRUGS (3)
  1. 20% MANNITOL INJECTION [Suspect]
     Active Substance: MANNITOL
     Indication: SWELLING
  2. 20% MANNITOL INJECTION [Suspect]
     Active Substance: MANNITOL
     Indication: FOOT FRACTURE
     Route: 041
     Dates: start: 20140830, end: 20140830
  3. 20% MANNITOL INJECTION [Suspect]
     Active Substance: MANNITOL
     Indication: OFF LABEL USE

REACTIONS (1)
  - Rash pruritic [Recovering/Resolving]

NARRATIVE: CASE EVENT DATE: 20140830
